FAERS Safety Report 13078388 (Version 3)
Quarter: 2017Q1

REPORT INFORMATION
  Report Type: Spontaneous
  Country: RU (occurrence: RU)
  Receive Date: 20170102
  Receipt Date: 20170308
  Transmission Date: 20170428
  Serious: No
  Sender: FDA-Public Use
  Company Number: RU-JNJFOC-20161227053

PATIENT
  Age: 68 Year
  Sex: Female

DRUGS (7)
  1. PHLEBODIA [Concomitant]
     Active Substance: DIOSMIN
     Route: 048
  2. PHLEBODIA [Concomitant]
     Active Substance: DIOSMIN
     Route: 048
  3. DOLOBENE [Concomitant]
     Route: 061
  4. TROXEVASIN [Concomitant]
     Route: 048
  5. XARELTO [Suspect]
     Active Substance: RIVAROXABAN
     Indication: PHLEBITIS SUPERFICIAL
     Dosage: XARELTO 15 MG
     Route: 048
  6. XARELTO [Suspect]
     Active Substance: RIVAROXABAN
     Indication: PHLEBITIS SUPERFICIAL
     Route: 048
  7. DIOSMIN W/HESPERIDIN [Suspect]
     Active Substance: DIOSMIN\HESPERIDIN
     Indication: PRODUCT USED FOR UNKNOWN INDICATION
     Route: 048

REACTIONS (2)
  - Off label use [Unknown]
  - Therapeutic response unexpected [Unknown]
